FAERS Safety Report 4496627-1 (Version None)
Quarter: 2004Q4

REPORT INFORMATION
  Report Type: 
  Country: None (occurrence: None)
  Receive Date: 20040923
  Receipt Date: 20040623
  Transmission Date: 20050328
  Serious: No
  Sender: FDA-Public Use
  Company Number: WAES 0406USA02175

PATIENT

DRUGS (8)
  1. INVANZ [Suspect]
     Indication: ANTIBACTERIAL PROPHYLAXIS
  2. ARICEPT [Concomitant]
  3. COZAAR [Concomitant]
  4. LENOXIN [Concomitant]
  5. LOPRESSOR [Concomitant]
  6. NORVASC [Concomitant]
  7. SYNTHROID [Concomitant]
  8. TEGRETOL [Concomitant]

REACTIONS (1)
  - HICCUPS [None]
